FAERS Safety Report 10818514 (Version 1)
Quarter: 2015Q1

REPORT INFORMATION
  Report Type: Spontaneous
  Country: CA (occurrence: CA)
  Receive Date: 20150218
  Receipt Date: 20150218
  Transmission Date: 20150721
  Serious: Yes (Other)
  Sender: FDA-Public Use
  Company Number: CA-TEVA-540983USA

PATIENT
  Age: 29 Year
  Sex: Female

DRUGS (1)
  1. PLAN B [Suspect]
     Active Substance: LEVONORGESTREL
     Indication: POST COITAL CONTRACEPTION
     Dosage: TOOK TWO TABLETS TOGETHER, TWICE IN ONE WEEK
     Route: 065

REACTIONS (2)
  - Haemorrhage [Not Recovered/Not Resolved]
  - Inappropriate schedule of drug administration [Unknown]
